FAERS Safety Report 5400558-X (Version None)
Quarter: 2007Q3

REPORT INFORMATION
  Report Type: 
  Country: None (occurrence: None)
  Receive Date: 20070725
  Receipt Date: 20070709
  Transmission Date: 20080115
  Serious: No
  Sender: FDA-Public Use
  Company Number: 2007SP006044

PATIENT
  Age: 51 Year
  Sex: Female

DRUGS (3)
  1. CLARITIN REDITABS [Suspect]
     Indication: RHINITIS ALLERGIC
     Dosage: 10 MG; PO
     Route: 048
     Dates: start: 20070224
  2. CELESTAMINE TAB [Suspect]
     Indication: RHINITIS ALLERGIC
     Dosage: 1 DF; PO
     Route: 048
     Dates: start: 20070224
  3. FLUTICASONE PROPIONATE [Concomitant]

REACTIONS (3)
  - DRUG INTERACTION [None]
  - OEDEMA PERIPHERAL [None]
  - PALPITATIONS [None]
